FAERS Safety Report 9981305 (Version 1)
Quarter: 2014Q1

REPORT INFORMATION
  Report Type: Spontaneous
  Country: US (occurrence: None)
  Receive Date: 20140306
  Receipt Date: 20140306
  Transmission Date: 20141002
  Serious: Yes (Disabling, Other)
  Sender: FDA-Public Use
  Company Number: None

PATIENT
  Age: 27 Week
  Sex: Male
  Weight: 58.97 kg

DRUGS (1)
  1. VIVITROL ORAL 50 MG UNKNOWN [Suspect]
     Indication: DRUG DEPENDENCE
     Dosage: ONE PILL DAILY  ONCE DAILY  TAKEN BY MOUTH
     Route: 048
     Dates: start: 20140201, end: 20140305

REACTIONS (6)
  - Vomiting [None]
  - Abdominal pain upper [None]
  - Malaise [None]
  - Drug hypersensitivity [None]
  - Weight decreased [None]
  - Cachexia [None]
